FAERS Safety Report 8539439-1 (Version None)
Quarter: 2012Q3

REPORT INFORMATION
  Report Type: 
  Country: None (occurrence: None)
  Receive Date: 20120726
  Receipt Date: 20120717
  Transmission Date: 20120928
  Serious: Yes (Hospitalization, Other)
  Sender: FDA-Public Use
  Company Number: US-JNJFOC-20120708459

PATIENT
  Sex: Female
  Weight: 97.52 kg

DRUGS (2)
  1. REMICADE [Suspect]
     Indication: PSORIATIC ARTHROPATHY
     Dosage: DOSE: 5 VIALS
     Route: 042
     Dates: start: 20000101
  2. MAXZIDE [Concomitant]
     Indication: OEDEMA
     Route: 048

REACTIONS (15)
  - SPINAL DISORDER [None]
  - ATRIAL FIBRILLATION [None]
  - DEPRESSION [None]
  - FIBROMYALGIA [None]
  - GASTROINTESTINAL DISORDER [None]
  - ASTHMA [None]
  - SINUSITIS [None]
  - OSTEOPOROSIS [None]
  - BONE DISORDER [None]
  - RHEUMATOID ARTHRITIS [None]
  - ALLERGIC RESPIRATORY DISEASE [None]
  - HYPERTENSION [None]
  - STRESS FRACTURE [None]
  - BLOOD CHOLESTEROL INCREASED [None]
  - EPISTAXIS [None]
